FAERS Safety Report 10061713 (Version 1)
Quarter: 2014Q2

REPORT INFORMATION
  Report Type: Spontaneous
  Country: US (occurrence: None)
  Receive Date: 20140403
  Receipt Date: 20140403
  Transmission Date: 20141212
  Serious: Yes (Hospitalization)
  Sender: FDA-Public Use
  Company Number: 2014P1002551

PATIENT
  Age: 6 Year
  Sex: Male

DRUGS (1)
  1. ACTIMMUNE [Suspect]
     Indication: CHRONIC GRANULOMATOUS DISEASE
     Dates: end: 2013

REACTIONS (3)
  - Abscess [None]
  - Infection [None]
  - Disease recurrence [None]
